FAERS Safety Report 19643580 (Version 1)
Quarter: 2021Q3

REPORT INFORMATION
  Report Type: Report from Study
  Country: DE (occurrence: DE)
  Receive Date: 20210730
  Receipt Date: 20210730
  Transmission Date: 20211014
  Serious: Yes (Hospitalization)
  Sender: FDA-Public Use
  Company Number: DE-TAKEDA-DE201500391

PATIENT
  Age: 32 Year
  Sex: Male

DRUGS (1)
  1. IDURSULFASE [Suspect]
     Active Substance: IDURSULFASE
     Indication: MUCOPOLYSACCHARIDOSIS II
     Dosage: 0.5 MG/KG, 1X/WEEK
     Route: 041
     Dates: start: 20070515

REACTIONS (2)
  - Urticaria [Recovered/Resolved]
  - Sleep apnoea syndrome [Recovered/Resolved with Sequelae]

NARRATIVE: CASE EVENT DATE: 20070619
